FAERS Safety Report 6699128-5 (Version None)
Quarter: 2010Q2

REPORT INFORMATION
  Report Type: 
  Country: None (occurrence: None)
  Receive Date: 20100427
  Receipt Date: 20100420
  Transmission Date: 20101027
  Serious: Yes (Hospitalization)
  Sender: FDA-Public Use
  Company Number: US-JNJFOC-20100405830

PATIENT
  Sex: Female
  Weight: 75.3 kg

DRUGS (12)
  1. DOXORUBICIN HCL [Suspect]
     Indication: MULTIPLE MYELOMA
  2. BORTEZOMIB [Suspect]
     Indication: MULTIPLE MYELOMA
     Route: 042
  3. DECADRON [Suspect]
     Indication: MULTIPLE MYELOMA
     Route: 042
  4. FLUTICASONE PROPIONATE [Concomitant]
     Route: 045
  5. VALTREX [Concomitant]
     Route: 048
  6. ALPHA LIPOIC ACID [Concomitant]
     Route: 048
  7. ASPIRIN [Concomitant]
     Route: 048
  8. AVELOX [Concomitant]
     Route: 048
  9. CHOLECALCIFEROL [Concomitant]
     Route: 048
  10. HYDROCODONE BITARTRATE AND ACETAMINOPHEN [Concomitant]
     Indication: PAIN
     Route: 048
  11. OXYCODONE HCL EXTENDED-RELEASE [Concomitant]
     Route: 048
  12. SIMVASTATIN [Concomitant]
     Route: 048

REACTIONS (3)
  - BRONCHOSPASM [None]
  - PNEUMONIA [None]
  - RESPIRATORY DISTRESS [None]
